FAERS Safety Report 8618227-1 (Version None)
Quarter: 2012Q3

REPORT INFORMATION
  Report Type: 
  Country: None (occurrence: None)
  Receive Date: 20120824
  Receipt Date: 20120816
  Transmission Date: 20120928
  Serious: Yes (Hospitalization, Other)
  Sender: FDA-Public Use
  Company Number: AU-009507513-2011SP048918

PATIENT

DRUGS (13)
  1. ACETAMINOPHEN [Concomitant]
     Dosage: UNK UNK, UNKNOWN
     Route: 065
  2. MICARDIS [Concomitant]
     Indication: BLOOD PRESSURE
     Dosage: UNK UNK, UNKNOWN
     Route: 065
  3. AMLODIPINE BESYLATE [Concomitant]
     Indication: BLOOD PRESSURE
     Dosage: 5 MG, QW
     Route: 065
  4. AMLODIPINE BESYLATE [Concomitant]
     Dosage: 10 MG, QW
     Dates: start: 20120514
  5. INTRON A [Suspect]
     Indication: MALIGNANT MELANOMA
     Dosage: 40 MILLION IU, UNKNOWN
     Route: 042
     Dates: start: 20110829
  6. INTRON A [Suspect]
     Dosage: UNK UNK, UNKNOWN
     Route: 065
     Dates: start: 20111016
  7. INTRON A [Suspect]
     Dosage: 22.6 MILLION IU, TIW
     Route: 042
     Dates: start: 20111003
  8. BISMUTH SUBNITRATE (+) CALCIUM CARBONATE (+) PHENOBARBITAL (+) SODIUM [Concomitant]
     Dosage: UNSPECIFIED ANTIACID
     Route: 065
  9. INTRON A [Suspect]
     Dosage: 30 MILLION IU, UNKNOWN
     Route: 042
  10. INTRON A [Suspect]
     Dosage: 22.6 MILLION IU, TIW
     Route: 065
     Dates: start: 20111006, end: 20111201
  11. INTRON A [Suspect]
     Dosage: 22.6 MILLION IU, TIW
     Route: 065
     Dates: start: 20120116
  12. INTRON A [Suspect]
     Dosage: 22.5 MILLION IU, TIW
     Route: 065
     Dates: start: 20120507, end: 20120716
  13. ONDANSETRON [Concomitant]
     Indication: NAUSEA
     Dosage: UNK UNK, UNKNOWN
     Route: 065

REACTIONS (5)
  - LIVER FUNCTION TEST ABNORMAL [None]
  - POST PROCEDURAL INFECTION [None]
  - LOWER RESPIRATORY TRACT INFECTION [None]
  - CARDIAC FLUTTER [None]
  - SALMONELLA SEPSIS [None]
